FAERS Safety Report 16416085 (Version 1)
Quarter: 2019Q2

REPORT INFORMATION
  Report Type: Report from Study
  Country: US (occurrence: US)
  Receive Date: 20190611
  Receipt Date: 20190611
  Transmission Date: 20190711
  Serious: Yes (Other)
  Sender: FDA-Public Use
  Company Number: US-JNJFOC-20190512786

PATIENT
  Sex: Male

DRUGS (9)
  1. LEVOTHYROXINE. [Concomitant]
     Active Substance: LEVOTHYROXINE
  2. SULFAMETHOXAZOLE [Concomitant]
     Active Substance: SULFAMETHOXAZOLE
  3. TRESIBA [Concomitant]
     Active Substance: INSULIN DEGLUDEC
  4. PAROXETINE. [Concomitant]
     Active Substance: PAROXETINE
  5. METFORMIN [Concomitant]
     Active Substance: METFORMIN HYDROCHLORIDE
  6. ATORVASTATIN [Concomitant]
     Active Substance: ATORVASTATIN
  7. ACYCLOVIR. [Concomitant]
     Active Substance: ACYCLOVIR
  8. INSULIN [Concomitant]
     Active Substance: INSULIN NOS
  9. IMBRUVICA [Suspect]
     Active Substance: IBRUTINIB
     Indication: MARGINAL ZONE LYMPHOMA
     Route: 048
     Dates: start: 20190308

REACTIONS (7)
  - Nausea [Recovering/Resolving]
  - Haemorrhagic diathesis [Not Recovered/Not Resolved]
  - Diabetes mellitus [Not Recovered/Not Resolved]
  - Vascular rupture [Recovered/Resolved]
  - Hypothyroidism [Not Recovered/Not Resolved]
  - Therapeutic response unexpected [Recovered/Resolved]
  - Increased tendency to bruise [Not Recovered/Not Resolved]
